FAERS Safety Report 8756068 (Version 5)
Quarter: 2014Q1

REPORT INFORMATION
  Report Type: Spontaneous
  Country: US (occurrence: US)
  Receive Date: 20120828
  Receipt Date: 20140127
  Transmission Date: 20141002
  Serious: Yes (Disabling, Other)
  Sender: FDA-Public Use
  Company Number: US-MERCK-1208USA007493

PATIENT
  Sex: Female

DRUGS (10)
  1. FOSAMAX [Suspect]
     Indication: OSTEOPENIA
     Dosage: 70 MG, QW
     Route: 048
     Dates: start: 2002, end: 2006
  2. FOSAMAX [Suspect]
     Indication: OSTEOPOROSIS
     Dosage: 40 MG, UNK
     Route: 048
     Dates: start: 20021204, end: 20071003
  3. CORTICOSTEROIDS (UNSPECIFIED) [Concomitant]
     Dosage: UNK
     Dates: start: 1990
  4. BONIVA [Concomitant]
     Indication: OSTEOPOROSIS
     Dosage: UNK
     Dates: start: 2011, end: 2011
  5. BONIVA [Concomitant]
     Indication: OSTEOPENIA
  6. ACTONEL [Suspect]
     Indication: OSTEOPOROSIS
     Dosage: 30 MG, QW
     Dates: start: 20071003, end: 201106
  7. ACTONEL [Suspect]
     Indication: OSTEOPENIA
  8. FOSAMAX PLUS D [Suspect]
     Dosage: 70MG /2800IU
     Route: 048
     Dates: start: 20070301, end: 20070720
  9. PREDNISONE [Concomitant]
     Indication: RHEUMATOID ARTHRITIS
  10. ARAVA [Concomitant]
     Indication: RHEUMATOID ARTHRITIS

REACTIONS (30)
  - Femoral neck fracture [Not Recovered/Not Resolved]
  - Hip arthroplasty [Unknown]
  - Hip arthroplasty [Unknown]
  - Hip arthroplasty [Unknown]
  - Humerus fracture [Unknown]
  - Humerus fracture [Unknown]
  - Blindness unilateral [Unknown]
  - Open reduction of fracture [Unknown]
  - Dental implantation [Unknown]
  - Vitamin D deficiency [Unknown]
  - Adverse event [Unknown]
  - Hypercholesterolaemia [Unknown]
  - Chondropathy [Unknown]
  - Joint dislocation [Unknown]
  - Joint dislocation [Unknown]
  - Compression fracture [Unknown]
  - Fall [Unknown]
  - Fall [Unknown]
  - Diverticulum intestinal [Unknown]
  - Sciatica [Not Recovered/Not Resolved]
  - Essential hypertension [Unknown]
  - Diabetic retinopathy [Unknown]
  - Angle closure glaucoma [Unknown]
  - Cystoid macular oedema [Unknown]
  - Neuropathy peripheral [Unknown]
  - Type 2 diabetes mellitus [Unknown]
  - Drug intolerance [Unknown]
  - Drug intolerance [Unknown]
  - Arthralgia [Unknown]
  - Gastrooesophageal reflux disease [Unknown]
